FAERS Safety Report 12496131 (Version 2)
Quarter: 2016Q3

REPORT INFORMATION
  Report Type: Spontaneous
  Country: JP (occurrence: JP)
  Receive Date: 20160624
  Receipt Date: 20160815
  Transmission Date: 20161109
  Serious: Yes (Hospitalization)
  Sender: FDA-Public Use
  Company Number: JP-PFIZER INC-2016284091

PATIENT
  Sex: Male

DRUGS (1)
  1. SUTENT [Suspect]
     Active Substance: SUNITINIB MALATE
     Indication: METASTATIC RENAL CELL CARCINOMA
     Dosage: UNK
     Route: 048
     Dates: end: 2016

REACTIONS (3)
  - Respiratory disorder [Recovered/Resolved]
  - Disease progression [Recovered/Resolved]
  - Metastatic renal cell carcinoma [Recovered/Resolved]

NARRATIVE: CASE EVENT DATE: 20160530
